FAERS Safety Report 9198569 (Version 1)
Quarter: 2013Q1

REPORT INFORMATION
  Report Type: Report from Study
  Country: JP (occurrence: JP)
  Receive Date: 20130329
  Receipt Date: 20130329
  Transmission Date: 20140127
  Serious: Yes (Other)
  Sender: FDA-Public Use
  Company Number: JP-EISAI INC-E7389-03675-SOL-JP

PATIENT
  Age: 37 Year
  Sex: Female
  Weight: 45 kg

DRUGS (36)
  1. HALAVEN [Suspect]
     Indication: BREAST CANCER RECURRENT
     Route: 041
     Dates: start: 20111004
  2. NOVAMIN [Concomitant]
     Indication: NAUSEA
     Dosage: UNKNOWN
     Route: 048
  3. ZOMETA [Concomitant]
     Indication: PROPHYLAXIS
     Dosage: UNKNOWN
     Route: 042
  4. DECADRON [Concomitant]
     Indication: PROPHYLAXIS
     Dosage: UNKNOWN
     Route: 042
  5. SEROTONE [Concomitant]
     Indication: PROPHYLAXIS
     Dosage: UNKNOWN
     Route: 042
  6. KAKKONTO [Concomitant]
     Indication: NASOPHARYNGITIS
     Dosage: UNKNOWN
     Route: 048
  7. ZYRTEC [Concomitant]
     Indication: RHINORRHOEA
     Dosage: UNKNOWN
     Route: 048
  8. SENEGA [Concomitant]
     Indication: COUGH
     Dosage: UNKNOWN
     Route: 048
  9. APRICOT KERNEL WATER [Concomitant]
     Indication: COUGH
     Dosage: UNKNOWN
     Route: 048
  10. BROCIN [Concomitant]
     Indication: COUGH
     Route: 048
  11. CODEINE [Concomitant]
     Indication: COUGH
     Dosage: UNKNOWN
     Route: 048
  12. LOXONIN [Concomitant]
     Indication: PAIN
     Dosage: UNKNOWN
     Route: 048
  13. CYTOTEC [Concomitant]
     Indication: PROPHYLAXIS
     Dosage: UNKNOWN
     Route: 048
  14. CRAVIT [Concomitant]
     Indication: PROPHYLAXIS
     Dosage: UNKNOWN
     Route: 048
  15. GASTER [Concomitant]
     Indication: PROPHYLAXIS
     Dosage: UNKNOWN
     Route: 042
  16. ROCEPHIN [Concomitant]
     Indication: PROPHYLAXIS
     Dosage: UNKNOWN
     Route: 042
  17. ADONA [Concomitant]
     Indication: PROPHYLAXIS
     Dosage: UNKNOWN
     Route: 042
  18. ATARAX-P [Concomitant]
     Indication: PROPHYLAXIS
     Dosage: UNKNOWN
     Route: 042
  19. MUCOSTA [Concomitant]
     Indication: PROPHYLAXIS
     Dosage: UNKNOWN
     Route: 048
  20. FLOMOX [Concomitant]
     Indication: PROPHYLAXIS
     Dosage: UNKNOWN
     Route: 048
  21. SOLANAX [Concomitant]
     Indication: CHEST PAIN
     Dosage: UNKNOWN
     Route: 048
  22. POSTERISAN [Concomitant]
     Indication: ANORECTAL DISCOMFORT
     Dosage: UNKNOWN
     Route: 065
  23. LENDORMIN [Concomitant]
     Indication: INSOMNIA
     Dosage: UNKNOWN
     Route: 048
  24. RANMARK [Concomitant]
     Indication: PROPHYLAXIS
     Route: 042
  25. OXYCONTIN [Concomitant]
     Indication: PAIN
     Dosage: UNKNOWN
     Route: 048
  26. LAXOBERON [Concomitant]
     Indication: CONSTIPATION
     Dosage: UNKNOWN
     Route: 048
  27. ASPARA-CA [Concomitant]
     Indication: PROPHYLAXIS
     Dosage: UNKNOWN
     Route: 048
  28. GASTER D [Concomitant]
     Indication: PROPHYLAXIS
     Dosage: UNKNOWN
     Route: 048
  29. OXINORM [Concomitant]
     Indication: PAIN
     Dosage: UNKNOWN
     Route: 048
  30. MEDICON [Concomitant]
     Indication: COUGH
     Dosage: UNKNOWN
     Route: 048
  31. MINOPEN [Concomitant]
     Indication: PLEURODESIS
     Dosage: UNKNOWN
     Route: 042
  32. LIDOCAINE [Concomitant]
     Indication: PLEURODESIS
     Dosage: UNKNOWN
     Route: 042
  33. SEFMAZON [Concomitant]
     Indication: INFUSION
     Dosage: UNKNOWN
     Route: 042
  34. SOLU-MEDROL [Concomitant]
     Indication: RESPIRATORY DISTRESS
     Dosage: UNKNOWN
     Route: 042
  35. NAUZELIN [Concomitant]
     Indication: PROPHYLAXIS
     Dosage: UNKNOWN
     Route: 048
  36. FENTANYL [Concomitant]
     Indication: PRODUCT USED FOR UNKNOWN INDICATION
     Dosage: UNKNOWN
     Route: 042

REACTIONS (1)
  - Pneumothorax [Recovered/Resolved]
